FAERS Safety Report 23585923 (Version 1)
Quarter: 2024Q1

REPORT INFORMATION
  Report Type: Spontaneous
  Country: FR (occurrence: FR)
  Receive Date: 20240301
  Receipt Date: 20240301
  Transmission Date: 20240410
  Serious: Yes (Hospitalization)
  Sender: FDA-Public Use
  Company Number: None

PATIENT
  Age: 79 Year
  Sex: Female
  Weight: 59 kg

DRUGS (11)
  1. VERAPAMIL HYDROCHLORIDE [Interacting]
     Active Substance: VERAPAMIL HYDROCHLORIDE
     Indication: Hypertension
     Dosage: CHLORHYDRATE DE VERAPAMIL
     Route: 048
     Dates: end: 20221223
  2. BUDESONIDE [Concomitant]
     Active Substance: BUDESONIDE
  3. PAXLOVID [Interacting]
     Active Substance: NIRMATRELVIR\RITONAVIR
     Indication: COVID-19
     Dosage: 2 DOSES SPACED 12 HOURS APART OF 2 TABS OF NIRMATRELVIR DOSED AT 150 MG AND 1 TAB OF RITONAVIR DO...
     Route: 048
     Dates: start: 20221222, end: 20221222
  4. ESOMEPRAZOLE [Concomitant]
     Active Substance: ESOMEPRAZOLE
     Indication: Product used for unknown indication
  5. ACETAMINOPHEN [Concomitant]
     Active Substance: ACETAMINOPHEN
     Indication: Product used for unknown indication
  6. SITAGLIPTIN [Concomitant]
     Active Substance: SITAGLIPTIN
     Indication: Product used for unknown indication
  7. METFORMIN HYDROCHLORIDE [Concomitant]
     Active Substance: METFORMIN HYDROCHLORIDE
     Indication: Product used for unknown indication
  8. CODEINE [Concomitant]
     Active Substance: CODEINE
     Indication: Product used for unknown indication
  9. MONTELUKAST SODIUM [Concomitant]
     Active Substance: MONTELUKAST SODIUM
     Indication: Product used for unknown indication
     Dosage: MONTELUKAST SODIQUE
  10. FORMOTEROL FUMARATE DIHYDRATE [Concomitant]
     Active Substance: FORMOTEROL FUMARATE DIHYDRATE
     Indication: Product used for unknown indication
     Dosage: FORMOTEROL (FUMARATE DE) DIHYDRATE
  11. HYDROXYZINE HYDROCHLORIDE [Interacting]
     Active Substance: HYDROXYZINE HYDROCHLORIDE
     Indication: Asthma
     Dosage: HYDROXYZINE (CHLORHYDRATE D^)
     Route: 048

REACTIONS (1)
  - Sinus node dysfunction [Recovered/Resolved]

NARRATIVE: CASE EVENT DATE: 20221223
